FAERS Safety Report 25538539 (Version 4)
Quarter: 2025Q4

REPORT INFORMATION
  Report Type: Spontaneous
  Country: AU (occurrence: AU)
  Receive Date: 20250710
  Receipt Date: 20251201
  Transmission Date: 20260117
  Serious: Yes (Death, Hospitalization, Other)
  Sender: CSL BEHRING
  Company Number: AU-BEH-2025211673

PATIENT
  Age: 79 Year
  Sex: Male

DRUGS (2)
  1. HUMAN IMMUNOGLOBULIN G [Suspect]
     Active Substance: HUMAN IMMUNOGLOBULIN G
     Indication: Diffuse large B-cell lymphoma
     Dosage: 35 G, QMT
     Route: 042
     Dates: start: 20250630, end: 20250630
  2. HUMAN IMMUNOGLOBULIN G [Suspect]
     Active Substance: HUMAN IMMUNOGLOBULIN G
     Indication: Hypogammaglobulinaemia

REACTIONS (7)
  - Disease complication [Fatal]
  - Acute pulmonary oedema [Unknown]
  - Chills [Unknown]
  - Hypoxia [Unknown]
  - Dyspnoea [Unknown]
  - Cough [Unknown]
  - Wheezing [Unknown]

NARRATIVE: CASE EVENT DATE: 20250630
